FAERS Safety Report 8491443-8 (Version None)
Quarter: 2012Q3

REPORT INFORMATION
  Report Type: 
  Country: None (occurrence: None)
  Receive Date: 20120706
  Receipt Date: 20120629
  Transmission Date: 20120928
  Serious: Yes (Other)
  Sender: FDA-Public Use
  Company Number: PL-BAYER-2012-066181

PATIENT
  Age: 64 Year
  Sex: Female
  Weight: 70 kg

DRUGS (1)
  1. ULTRAVIST 150 [Suspect]
     Indication: COMPUTERISED TOMOGRAM
     Dosage: 70 ML, UNK
     Route: 042
     Dates: start: 20120131, end: 20120131

REACTIONS (4)
  - LIP OEDEMA [None]
  - TONGUE DISORDER [None]
  - EYELID OEDEMA [None]
  - ABDOMINAL PAIN UPPER [None]
